FAERS Safety Report 12442885 (Version 1)
Quarter: 2016Q2

REPORT INFORMATION
  Report Type: Spontaneous
  Country: GB (occurrence: GB)
  Receive Date: 20160607
  Receipt Date: 20160607
  Transmission Date: 20160815
  Serious: Yes (Disabling, Other)
  Sender: FDA-Public Use
  Company Number: GB-BAYER-2016-102551

PATIENT
  Sex: Female

DRUGS (1)
  1. CIPROFLOXACIN MONOHYDROCHLORIDE [Suspect]
     Active Substance: CIPROFLOXACIN
     Indication: LUNG INFECTION
     Dosage: UNK

REACTIONS (15)
  - Paraesthesia [None]
  - Impaired work ability [None]
  - Pain [None]
  - Fatigue [None]
  - Hypoaesthesia [None]
  - Asthenia [None]
  - Muscle disorder [None]
  - Groin pain [None]
  - Visual impairment [None]
  - General physical health deterioration [None]
  - Neuropathy peripheral [None]
  - Myalgia [None]
  - Burning sensation [None]
  - Arthropathy [None]
  - Bone disorder [None]
